FAERS Safety Report 10388880 (Version 1)
Quarter: 2014Q1

REPORT INFORMATION
  Report Type: Spontaneous
  Country: US (occurrence: None)
  Receive Date: 20140306
  Receipt Date: 20140306
  Transmission Date: 20141002
  Serious: Yes (Death, Other)
  Sender: FDA-Public Use
  Company Number: 163-21880-13072006

PATIENT
  Age: 73 Year
  Sex: Female

DRUGS (9)
  1. REVLIMID (LENALIDOMIDE) (CAPSULES) [Suspect]
     Indication: PLASMA CELL MYELOMA
     Route: 048
     Dates: start: 200008
  2. ASPIRIN (ACETYLSALICYLIC ACID) [Concomitant]
  3. CITALOPRAM [Concomitant]
  4. VALIUM (DIAZEPAM) [Concomitant]
  5. XALATAN (LATANOPROST) [Concomitant]
  6. MULTIVITAMINS [Concomitant]
  7. VITAMIN B 12 [Concomitant]
  8. VELCADE (BORTEZOMIB) [Concomitant]
  9. DEXAMETHASONE [Concomitant]

REACTIONS (5)
  - Plasma cell myeloma [None]
  - Monoclonal immunoglobulin present [None]
  - Anaemia [None]
  - Thrombocytopenia [None]
  - Drug ineffective [None]
